FAERS Safety Report 10272650 (Version 1)
Quarter: 2014Q2

REPORT INFORMATION
  Report Type: Spontaneous
  Country: US (occurrence: None)
  Receive Date: 20140627
  Receipt Date: 20140627
  Transmission Date: 20141212
  Serious: Yes (Hospitalization, Other)
  Sender: FDA-Public Use
  Company Number: 2014SUP00006

PATIENT
  Sex: Female

DRUGS (1)
  1. OXTELLAR XR [Suspect]

REACTIONS (1)
  - Hospitalisation [None]
